FAERS Safety Report 6553921-8 (Version None)
Quarter: 2010Q1

REPORT INFORMATION
  Report Type: 
  Country: None (occurrence: None)
  Receive Date: 20100127
  Receipt Date: 20100115
  Transmission Date: 20100710
  Serious: Yes (Other)
  Sender: FDA-Public Use
  Company Number: JP-PFIZER INC-2010009518

PATIENT
  Age: 65 Year
  Sex: Male

DRUGS (1)
  1. LIPITOR [Suspect]
     Dosage: 5 MG, UNK
     Route: 048
     Dates: end: 20100115

REACTIONS (1)
  - BLOOD PRESSURE INCREASED [None]
